FAERS Safety Report 21178532 (Version 1)
Quarter: 2022Q3

REPORT INFORMATION
  Report Type: Spontaneous
  Country: US (occurrence: US)
  Receive Date: 20220805
  Receipt Date: 20220805
  Transmission Date: 20221027
  Serious: Yes (Life-Threatening, Hospitalization, Other)
  Sender: FDA-Public Use
  Company Number: US-BoehringerIngelheim-2022-BI-185552

PATIENT
  Age: 56 Year
  Sex: Female

DRUGS (1)
  1. MOBIC [Suspect]
     Active Substance: MELOXICAM
     Indication: Arthritis
     Dates: start: 2007

REACTIONS (11)
  - Respiratory arrest [Unknown]
  - Myocardial infarction [Not Recovered/Not Resolved]
  - Renal impairment [Unknown]
  - Chest pain [Not Recovered/Not Resolved]
  - Chronic obstructive pulmonary disease [Not Recovered/Not Resolved]
  - Weight decreased [Recovered/Resolved]
  - Weight increased [Recovered/Resolved]
  - Arthralgia [Not Recovered/Not Resolved]
  - Euphoric mood [Unknown]
  - Influenza [Recovering/Resolving]
  - Peroneal nerve palsy [Unknown]

NARRATIVE: CASE EVENT DATE: 20120101
